FAERS Safety Report 10447257 (Version 1)
Quarter: 2014Q3

REPORT INFORMATION
  Report Type: Other
  Country: GB (occurrence: GB)
  Receive Date: 20140911
  Receipt Date: 20140911
  Transmission Date: 20150326
  Serious: Yes (Hospitalization)
  Sender: FDA-Public Use
  Company Number: GB-MYLAN-2014M1003283

PATIENT

DRUGS (8)
  1. SIMVASTATIN. [Concomitant]
     Active Substance: SIMVASTATIN
     Dosage: 10MG OD - EVENING
     Route: 048
  2. ATENOLOL. [Concomitant]
     Active Substance: ATENOLOL
     Dosage: 50MG OD
  3. OMEPRAZOLE. [Concomitant]
     Active Substance: OMEPRAZOLE
     Dosage: 20MG OD
     Route: 048
  4. FOLIC ACID. [Concomitant]
     Active Substance: FOLIC ACID
     Dosage: 5MG OD
  5. ASPIRIN. [Concomitant]
     Active Substance: ASPIRIN
     Dosage: 75MG OD
     Route: 048
     Dates: start: 20140522
  6. SINEMET [Concomitant]
     Active Substance: CARBIDOPA\LEVODOPA
     Dosage: 25MG/100MG TABLETS ?2 QDS - 8AM, 12 NOON, 4PM + 8PM
     Route: 048
  7. ENTACAPONE. [Suspect]
     Active Substance: ENTACAPONE
     Dosage: 200MG QDS
     Route: 048
     Dates: start: 20140722, end: 20140726
  8. RAMIPRIL. [Concomitant]
     Active Substance: RAMIPRIL
     Dosage: 5MG OD
     Dates: start: 20140801

REACTIONS (2)
  - Aggression [Unknown]
  - Hallucination [Unknown]
